FAERS Safety Report 6657312-0 (Version None)
Quarter: 2010Q1

REPORT INFORMATION
  Report Type: 
  Country: None (occurrence: None)
  Receive Date: 20100325
  Receipt Date: 20100317
  Transmission Date: 20100710
  Serious: No
  Sender: FDA-Public Use
  Company Number: 20097759

PATIENT
  Sex: Male

DRUGS (1)
  1. LIORESAL [Suspect]
     Indication: MUSCLE SPASTICITY
     Dosage: 1200 MCG, DAILY, INTRATHECAL
     Route: 037

REACTIONS (11)
  - COGNITIVE DISORDER [None]
  - DEVICE FAILURE [None]
  - HAEMATOMA [None]
  - HYPERTONIA [None]
  - NO THERAPEUTIC RESPONSE [None]
  - OEDEMA [None]
  - PAIN [None]
  - SEROMA [None]
  - SOMNOLENCE [None]
  - UNDERDOSE [None]
  - WITHDRAWAL SYNDROME [None]
